FAERS Safety Report 9835869 (Version 4)
Quarter: 2014Q1

REPORT INFORMATION
  Report Type: Spontaneous
  Country: NL (occurrence: NL)
  Receive Date: 20140122
  Receipt Date: 20140328
  Transmission Date: 20141002
  Serious: Yes (Death, Other)
  Sender: FDA-Public Use
  Company Number: NL-UCBSA-109079

PATIENT
  Age: 51 Year
  Sex: Female
  Weight: 68 kg

DRUGS (3)
  1. VIMPAT [Suspect]
     Indication: EPILEPSY
     Route: 048
     Dates: start: 20110318, end: 20140106
  2. KEPPRA [Suspect]
     Indication: EPILEPSY
     Route: 048
     Dates: start: 20090303, end: 20140106
  3. FRISIUM [Suspect]
     Indication: EPILEPSY
     Route: 048
     Dates: start: 20080111, end: 20140106

REACTIONS (6)
  - Completed suicide [Fatal]
  - Overdose [Fatal]
  - Mood altered [Unknown]
  - Depressed mood [Unknown]
  - Agitation [Unknown]
  - Irritability [Unknown]
